FAERS Safety Report 9455802 (Version 1)
Quarter: 2013Q3

REPORT INFORMATION
  Report Type: Spontaneous
  Country: US (occurrence: US)
  Receive Date: 20130813
  Receipt Date: 20130813
  Transmission Date: 20140515
  Serious: Yes (Other)
  Sender: FDA-Public Use
  Company Number: US-PFIZER INC-2013234386

PATIENT
  Age: 62 Year
  Sex: Female
  Weight: 83.9 kg

DRUGS (4)
  1. EFFEXOR XR [Suspect]
     Indication: DEPRESSION
     Dosage: 35 MG, 2X/DAY
  2. EFFEXOR XR [Suspect]
     Dosage: 75 MG, 1X/DAY
  3. EFFEXOR XR [Suspect]
     Dosage: UNK
  4. VENLAFAXINE HCL [Suspect]
     Indication: DEPRESSION
     Dosage: UNK
     Dates: end: 20130806

REACTIONS (1)
  - Cerebrovascular accident [Unknown]
